FAERS Safety Report 7951161-9 (Version None)
Quarter: 2011Q4

REPORT INFORMATION
  Report Type: 
  Country: None (occurrence: None)
  Receive Date: 20111201
  Receipt Date: 20111121
  Transmission Date: 20120403
  Serious: Yes (Other)
  Sender: FDA-Public Use
  Company Number: BR-US-EMD SERONO, INC.-7097747

PATIENT
  Sex: Female

DRUGS (11)
  1. REBIF [Suspect]
     Indication: RELAPSING-REMITTING MULTIPLE SCLEROSIS
     Route: 058
     Dates: start: 20071008
  2. AMITRIPTYLINE HCL [Concomitant]
  3. AMLODIPINE [Concomitant]
  4. ASPIRIN [Concomitant]
  5. METHOTREXATE [Concomitant]
  6. PAROXETINE HCL [Concomitant]
  7. FOLIC ACID [Concomitant]
  8. HYDROCHLOROTHIAZIDE [Concomitant]
  9. OMEPRAZOLE [Concomitant]
  10. CAPTOPRIL [Concomitant]
  11. ACETAMINOPHEN [Concomitant]

REACTIONS (2)
  - TYPE 2 DIABETES MELLITUS [None]
  - SYSTEMIC LUPUS ERYTHEMATOSUS [None]
